FAERS Safety Report 6045159-8 (Version None)
Quarter: 2009Q1

REPORT INFORMATION
  Report Type: 
  Country: None (occurrence: None)
  Receive Date: 20090121
  Receipt Date: 20090109
  Transmission Date: 20090719
  Serious: Yes (Hospitalization)
  Sender: FDA-Public Use
  Company Number: JP-ASTRAZENECA-2009SE00344

PATIENT
  Sex: Male
  Weight: 58 kg

DRUGS (6)
  1. BLOPRESS TABLETS 8 [Suspect]
     Indication: HYPERTENSION
     Route: 048
     Dates: end: 20081220
  2. ALLOZYM [Concomitant]
     Route: 048
  3. GASTER D [Concomitant]
     Route: 048
  4. MUCOSTA [Concomitant]
     Route: 048
  5. MAGNESIUM OXIDE [Concomitant]
     Route: 048
  6. LAC B [Concomitant]
     Route: 048

REACTIONS (1)
  - RHABDOMYOLYSIS [None]
